FAERS Safety Report 6280080-1 (Version None)
Quarter: 2009Q3

REPORT INFORMATION
  Report Type: 
  Country: None (occurrence: None)
  Receive Date: 20090723
  Receipt Date: 20090709
  Transmission Date: 20100115
  Serious: Yes (Other)
  Sender: FDA-Public Use
  Company Number: US-PFIZER INC-2009238716

PATIENT

DRUGS (2)
  1. GEODON [Suspect]
     Dosage: 80 MG, 2X/DAY
  2. WELLBUTRIN [Suspect]
     Dosage: 300 MG

REACTIONS (3)
  - DRUG INTERACTION [None]
  - OCULOGYRIC CRISIS [None]
  - TORTICOLLIS [None]
